FAERS Safety Report 21523692 (Version 1)
Quarter: 2022Q4

REPORT INFORMATION
  Report Type: Spontaneous
  Country: US (occurrence: US)
  Receive Date: 20221029
  Receipt Date: 20221029
  Transmission Date: 20230113
  Serious: Yes (Other)
  Sender: FDA-Public Use
  Company Number: US-SA-2022SA437907

PATIENT
  Sex: Female

DRUGS (1)
  1. DUPILUMAB [Suspect]
     Active Substance: DUPILUMAB
     Dosage: 300 MG, FREQUENCY: OTHER
     Route: 058

REACTIONS (5)
  - Haematochezia [Recovered/Resolved]
  - Flatulence [Recovered/Resolved]
  - Mucous stools [Recovered/Resolved]
  - Blood iron decreased [Unknown]
  - Eosinophil count increased [Unknown]
